FAERS Safety Report 20494360 (Version 1)
Quarter: 2022Q1

REPORT INFORMATION
  Report Type: Spontaneous
  Country: US (occurrence: US)
  Receive Date: 20220221
  Receipt Date: 20220221
  Transmission Date: 20220424
  Serious: No
  Sender: FDA-Public Use
  Company Number: US-BIOVITRUM-2022US02349

PATIENT
  Sex: Female
  Weight: 8 kg

DRUGS (3)
  1. SYNAGIS [Suspect]
     Active Substance: PALIVIZUMAB
     Indication: Respiratory syncytial virus infection
     Dosage: SYNAGIS 50MG/0.5ML VL LIQUID
     Route: 030
     Dates: start: 202110
  2. AMOXICILLIN [Suspect]
     Active Substance: AMOXICILLIN
     Dosage: CHEWABLE TABLETS
  3. VITAMIN D3 [Concomitant]
     Active Substance: CHOLECALCIFEROL
     Dosage: 10(400)/ML DROPS

REACTIONS (6)
  - Ear infection [Unknown]
  - Hand-foot-and-mouth disease [Unknown]
  - Swelling [Unknown]
  - Pyrexia [Unknown]
  - Rash macular [Unknown]
  - Drug hypersensitivity [Unknown]
